FAERS Safety Report 8306858-8 (Version None)
Quarter: 2012Q2

REPORT INFORMATION
  Report Type: 
  Country: None (occurrence: None)
  Receive Date: 20120419
  Receipt Date: 20120412
  Transmission Date: 20120825
  Serious: Yes (Other)
  Sender: FDA-Public Use
  Company Number: DSA_48178_2011

PATIENT
  Sex: Female

DRUGS (3)
  1. XENAZINE [Suspect]
     Indication: TARDIVE DYSKINESIA
     Dosage: (12.5 MG TID ORAL) ; (12.5 MG BID ORAL)
     Route: 048
     Dates: start: 20110801
  2. XENAZINE [Suspect]
     Indication: HUNTINGTON'S DISEASE
     Dosage: (12.5 MG TID ORAL) ; (12.5 MG BID ORAL)
     Route: 048
     Dates: start: 20110801
  3. XENAZINE [Suspect]

REACTIONS (4)
  - AGITATION [None]
  - ABNORMAL BEHAVIOUR [None]
  - AGGRESSION [None]
  - KNEE ARTHROPLASTY [None]
